FAERS Safety Report 22171351 (Version 1)
Quarter: 2023Q2

REPORT INFORMATION
  Report Type: Spontaneous
  Country: GB (occurrence: GB)
  Receive Date: 20230404
  Receipt Date: 20230404
  Transmission Date: 20230722
  Serious: Yes (Other)
  Sender: FDA-Public Use
  Company Number: GB-002147023-NVSC2023GB072682

PATIENT
  Sex: Female

DRUGS (2)
  1. ESTRADIOL [Suspect]
     Active Substance: ESTRADIOL
     Indication: Hormone replacement therapy
     Dosage: 100 UG, Q24H
     Route: 062
  2. ESTRADIOL [Suspect]
     Active Substance: ESTRADIOL
     Dosage: 300 UG
     Route: 062

REACTIONS (2)
  - Haemorrhage [Unknown]
  - Incorrect dose administered [Unknown]
